FAERS Safety Report 5470764-7 (Version None)
Quarter: 2007Q3

REPORT INFORMATION
  Report Type: 
  Country: None (occurrence: None)
  Receive Date: 20070928
  Receipt Date: 20070921
  Transmission Date: 20080115
  Serious: Yes (Other)
  Sender: FDA-Public Use
  Company Number: US-SP-2007-03011

PATIENT
  Age: 5 Year
  Sex: Male

DRUGS (4)
  1. DAPTACEL [Suspect]
     Indication: IMMUNISATION
     Dosage: ADMINISTERED ^RIGHT^
     Route: 030
     Dates: start: 20070830
  2. IPOL [Suspect]
     Indication: IMMUNISATION
     Dosage: ADMINISTERED ^RIGHT^
     Route: 058
     Dates: start: 20070830
  3. TUBERSOL [Suspect]
     Indication: TUBERCULIN TEST
     Route: 023
     Dates: start: 20070830
  4. MMR2 [Suspect]
     Indication: IMMUNISATION
     Dosage: ADMINISTERED ^LEFT^
     Route: 058
     Dates: start: 20070830

REACTIONS (4)
  - DYSKINESIA [None]
  - EYE ROLLING [None]
  - PALLOR [None]
  - UNRESPONSIVE TO STIMULI [None]
